FAERS Safety Report 8388186-8 (Version None)
Quarter: 2012Q2

REPORT INFORMATION
  Report Type: 
  Country: None (occurrence: None)
  Receive Date: 20120525
  Receipt Date: 20120523
  Transmission Date: 20120825
  Serious: Yes (Death)
  Sender: FDA-Public Use
  Company Number: US-CELGENEUS-163-21880-12052835

PATIENT
  Sex: Female

DRUGS (8)
  1. PRILOSEC [Concomitant]
     Route: 065
  2. DEXAMETHASONE [Concomitant]
     Route: 065
  3. LANTUS [Concomitant]
     Route: 065
  4. XANAX [Concomitant]
     Route: 065
  5. REVLIMID [Suspect]
     Dosage: 15 MILLIGRAM
     Route: 048
     Dates: start: 20081203
  6. REVLIMID [Suspect]
     Dosage: 15 MILLIGRAM
     Route: 048
     Dates: start: 20120301
  7. OXYCODONE HCL [Concomitant]
     Route: 065
  8. GLIPIZIDE [Concomitant]
     Route: 065

REACTIONS (1)
  - DEATH [None]
